FAERS Safety Report 11229877 (Version 1)
Quarter: 2015Q2

REPORT INFORMATION
  Report Type: Spontaneous
  Country: US (occurrence: US)
  Receive Date: 20150630
  Receipt Date: 20150630
  Transmission Date: 20150821
  Serious: No
  Sender: FDA-Public Use
  Company Number: US-TEVA-572377USA

PATIENT
  Age: 75 Year
  Sex: Male
  Weight: 79.45 kg

DRUGS (6)
  1. AZILECT [Suspect]
     Active Substance: RASAGILINE MESYLATE
     Indication: PARKINSON^S DISEASE
     Dosage: 1 MILLIGRAM DAILY;
     Dates: start: 2014
  2. CARBIDOPA W/LEVODOPA [Concomitant]
     Active Substance: CARBIDOPA\LEVODOPA
  3. PROBIOTICA [Concomitant]
     Active Substance: PROBIOTICS NOS
  4. POLYETHYLENE GLYCOL [Concomitant]
     Active Substance: POLYETHYLENE GLYCOLS
  5. MULTIVITAMIN [Concomitant]
     Active Substance: VITAMINS
  6. AMANTADINE [Concomitant]
     Active Substance: AMANTADINE

REACTIONS (2)
  - Gynaecomastia [Unknown]
  - Gynaecomastia [Unknown]

NARRATIVE: CASE EVENT DATE: 201409
